FAERS Safety Report 9849016 (Version 1)
Quarter: 2014Q1

REPORT INFORMATION
  Report Type: Report from Study
  Country: DE (occurrence: DE)
  Receive Date: 20140128
  Receipt Date: 20140128
  Transmission Date: 20141002
  Serious: Yes (Death, Hospitalization)
  Sender: FDA-Public Use
  Company Number: DE-ROCHE-1339690

PATIENT
  Age: 86 Year
  Sex: Female
  Weight: 59 kg

DRUGS (3)
  1. BEVACIZUMAB [Suspect]
     Indication: OVARIAN CANCER
     Dosage: MOST RECENT DOSE PRIOR TO SAE ON 06/JAN/2014
     Route: 042
     Dates: start: 20130429
  2. CARBOPLATIN [Suspect]
     Indication: OVARIAN CANCER
     Dosage: DOSE 450 AUCS?MOST RECENT DOSE PRIOR TO SAE ON 12/AUG/2013
     Route: 042
     Dates: start: 20130429
  3. PACLITAXEL [Suspect]
     Indication: OVARIAN CANCER
     Dosage: 286.54 UG.?MOST RECENT DOSE PRIOR TO SAE ON 12/AUG/2013
     Route: 042
     Dates: start: 20130429

REACTIONS (1)
  - General physical health deterioration [Fatal]
